FAERS Safety Report 8760179 (Version 1)
Quarter: 2012Q4

REPORT INFORMATION
  Report Type: Spontaneous
  Country: US (occurrence: None)
  Receive Date: 20120829
  Receipt Date: 20120829
  Transmission Date: 20130627
  Serious: Yes (Hospitalization)
  Sender: FDA-Public Use
  Company Number: None

PATIENT
  Age: 51 Year
  Sex: Female
  Weight: 53.07 kg

DRUGS (3)
  1. GABAPENTIN [Suspect]
     Indication: NECK PAIN
     Dates: start: 20120714
  2. GABAPENTIN [Suspect]
     Indication: ADVERSE EVENT
     Dates: start: 20120714
  3. BACLOFEN [Suspect]

REACTIONS (17)
  - Agitation [None]
  - Psychomotor hyperactivity [None]
  - Lymphadenopathy [None]
  - Pharyngeal oedema [None]
  - Anxiety [None]
  - Depression [None]
  - Myalgia [None]
  - Decreased appetite [None]
  - Dyspnoea [None]
  - Memory impairment [None]
  - Disturbance in attention [None]
  - Dizziness [None]
  - Somnolence [None]
  - Headache [None]
  - Coordination abnormal [None]
  - Balance disorder [None]
  - Vision blurred [None]
